FAERS Safety Report 7291474-X (Version None)
Quarter: 2011Q1

REPORT INFORMATION
  Report Type: 
  Country: None (occurrence: None)
  Receive Date: 20110214
  Receipt Date: 20110203
  Transmission Date: 20110831
  Serious: Yes (Other)
  Sender: FDA-Public Use
  Company Number: TR-ELI_LILLY_AND_COMPANY-TR201102000919

PATIENT
  Sex: Male

DRUGS (3)
  1. PROZAC [Suspect]
     Indication: OBSESSIVE-COMPULSIVE DISORDER
     Dosage: 20 MG, 2/D
     Route: 048
  2. ZESPIRA [Concomitant]
     Indication: ASTHMA
     Dosage: 10 MG, DAILY (1/D)
     Route: 048
  3. SERETIDE DISKUS [Concomitant]
     Indication: ASTHMA
     Dosage: 250 UG, UNK
     Route: 055

REACTIONS (1)
  - RESTLESS LEGS SYNDROME [None]
